FAERS Safety Report 13254492 (Version 6)
Quarter: 2017Q4

REPORT INFORMATION
  Report Type: Spontaneous
  Country: US (occurrence: US)
  Receive Date: 20170221
  Receipt Date: 20171207
  Transmission Date: 20180320
  Serious: Yes (Other)
  Sender: FDA-Public Use
  Company Number: US-009507513-1702USA000828

PATIENT
  Age: 19 Year
  Sex: Female
  Weight: 56.68 kg

DRUGS (1)
  1. NEXPLANON [Suspect]
     Active Substance: ETONOGESTREL
     Dosage: 68MG, EVERY 3 YEARS
     Route: 059
     Dates: start: 20150312

REACTIONS (6)
  - Unintended pregnancy [Recovered/Resolved]
  - Muscle spasms [Unknown]
  - Pregnancy with implant contraceptive [Recovered/Resolved]
  - Vaginal haemorrhage [Unknown]
  - Abortion spontaneous [Unknown]
  - Menorrhagia [Unknown]

NARRATIVE: CASE EVENT DATE: 20170213
